FAERS Safety Report 4970203-6 (Version None)
Quarter: 2006Q2

REPORT INFORMATION
  Report Type: 
  Country: None (occurrence: None)
  Receive Date: 20060406
  Receipt Date: 20060322
  Transmission Date: 20061013
  Serious: Yes (Hospitalization, Disabling)
  Sender: FDA-Public Use
  Company Number: 416085

PATIENT
  Age: 17 Year
  Sex: Female
  Weight: 72.6 kg

DRUGS (1)
  1. ACCUTANE [Suspect]
     Indication: ACNE
     Dosage: ORAL
     Route: 048
     Dates: start: 19941004, end: 19941107

REACTIONS (109)
  - ABDOMINAL PAIN [None]
  - ABDOMINAL PAIN UPPER [None]
  - ABORTION INDUCED [None]
  - ANAEMIA [None]
  - ANAL FISSURE [None]
  - ARTHROPATHY [None]
  - BACK INJURY [None]
  - BACK PAIN [None]
  - BILIARY DYSKINESIA [None]
  - BLOOD CHOLESTEROL INCREASED [None]
  - BRONCHITIS [None]
  - CATARACT [None]
  - CHOLECYSTITIS [None]
  - CHOLECYSTITIS CHRONIC [None]
  - COLITIS [None]
  - COLITIS ISCHAEMIC [None]
  - COLITIS ULCERATIVE [None]
  - COMPLICATION OF PREGNANCY [None]
  - CONJUNCTIVITIS [None]
  - CONSTIPATION [None]
  - CONTRAST MEDIA REACTION [None]
  - COUGH [None]
  - CROHN'S DISEASE [None]
  - DEPRESSION [None]
  - DIZZINESS [None]
  - DYSMENORRHOEA [None]
  - DYSPAREUNIA [None]
  - EAR PAIN [None]
  - EJECTION FRACTION DECREASED [None]
  - ENDOMETRIOSIS [None]
  - EPISTAXIS [None]
  - ERYTHEMA [None]
  - EXCORIATION [None]
  - EYE DISCHARGE [None]
  - FACE INJURY [None]
  - FAECES DISCOLOURED [None]
  - FALL [None]
  - FLATULENCE [None]
  - FLUID RETENTION [None]
  - GALLBLADDER DISORDER [None]
  - GASTRIC ULCER [None]
  - GASTRITIS [None]
  - GASTROINTESTINAL DISORDER [None]
  - GASTROINTESTINAL HAEMORRHAGE [None]
  - GASTROINTESTINAL INFLAMMATION [None]
  - GASTROOESOPHAGEAL REFLUX DISEASE [None]
  - GENERALISED ANXIETY DISORDER [None]
  - GENITAL DISCHARGE [None]
  - HAEMATOCHEZIA [None]
  - HAEMORRHAGE [None]
  - HAEMORRHOIDS [None]
  - HEPATITIS [None]
  - HORDEOLUM [None]
  - HORMONE LEVEL ABNORMAL [None]
  - HYPOGLYCAEMIA [None]
  - HYPOTHYROIDISM [None]
  - ILEUS [None]
  - INFLAMMATORY BOWEL DISEASE [None]
  - INFLUENZA [None]
  - INTESTINAL HAEMORRHAGE [None]
  - INTESTINAL MUCOSAL HYPERTROPHY [None]
  - IRRITABLE BOWEL SYNDROME [None]
  - JOINT DISLOCATION [None]
  - JOINT SPRAIN [None]
  - LACERATION [None]
  - LACRIMATION INCREASED [None]
  - LIBIDO DECREASED [None]
  - LIMB INJURY [None]
  - LYMPHOID TISSUE HYPERPLASIA [None]
  - MEMORY IMPAIRMENT [None]
  - MIGRAINE [None]
  - MOOD ALTERED [None]
  - MOOD SWINGS [None]
  - MOUTH INJURY [None]
  - MULTI-ORGAN DISORDER [None]
  - MUSCLE SPASMS [None]
  - MUSCLE STRAIN [None]
  - NAUSEA [None]
  - NECK PAIN [None]
  - NEURITIS [None]
  - OVARIAN CYST [None]
  - PAINFUL DEFAECATION [None]
  - PHOTOPHOBIA [None]
  - PREMATURE LABOUR [None]
  - PREMENSTRUAL SYNDROME [None]
  - PROCTITIS ULCERATIVE [None]
  - PYREXIA [None]
  - RADICULITIS [None]
  - RASH [None]
  - RECTAL HAEMORRHAGE [None]
  - RENAL CYST [None]
  - RHINORRHOEA [None]
  - SHOULDER PAIN [None]
  - SINUSITIS [None]
  - SKIN NODULE [None]
  - SNEEZING [None]
  - TENSION HEADACHE [None]
  - THERMAL BURN [None]
  - TINNITUS [None]
  - TONSILLITIS [None]
  - TREMOR [None]
  - VAGINAL BURNING SENSATION [None]
  - VAGINAL CANDIDIASIS [None]
  - VAGINAL DISCHARGE [None]
  - VAGINITIS BACTERIAL [None]
  - VERTIGO [None]
  - VULVOVAGINAL MYCOTIC INFECTION [None]
  - WHITE BLOOD CELL COUNT INCREASED [None]
  - WHITE BLOOD CELLS STOOL POSITIVE [None]
